FAERS Safety Report 24553438 (Version 1)
Quarter: 2024Q4

REPORT INFORMATION
  Report Type: Spontaneous
  Country: US (occurrence: US)
  Receive Date: 20241028
  Receipt Date: 20241028
  Transmission Date: 20250115
  Serious: No
  Sender: ROCHE
  Company Number: US-ROCHE-3523676

PATIENT
  Sex: Female
  Weight: 21.77 kg

DRUGS (4)
  1. NUTROPIN AQ [Suspect]
     Active Substance: SOMATROPIN
     Indication: Failure to thrive
     Dosage: STRENGTH: 10MG/2M
     Route: 058
  2. NUTROPIN AQ [Suspect]
     Active Substance: SOMATROPIN
     Indication: Underweight
  3. NUTROPIN AQ [Suspect]
     Active Substance: SOMATROPIN
     Indication: Short stature
  4. NUTROPIN AQ [Suspect]
     Active Substance: SOMATROPIN
     Indication: Growth retardation

REACTIONS (3)
  - Product complaint [Unknown]
  - Accidental exposure to product [Unknown]
  - No adverse event [Unknown]
